FAERS Safety Report 9585494 (Version 1)
Quarter: 2013Q4

REPORT INFORMATION
  Report Type: Report from Study
  Country: US (occurrence: US)
  Receive Date: 20131003
  Receipt Date: 20131003
  Transmission Date: 20140711
  Serious: Yes (Other)
  Sender: FDA-Public Use
  Company Number: US-ROCHE-1284343

PATIENT
  Age: 40 Year
  Sex: Male

DRUGS (8)
  1. XOLAIR [Suspect]
     Indication: ASTHMA
     Route: 065
  2. LANTUS [Concomitant]
     Dosage: 100 UNITS PER ML
     Route: 065
  3. LISINOPRIL [Concomitant]
     Route: 048
  4. ZOCOR [Concomitant]
     Route: 048
  5. VENTOLIN [Concomitant]
     Route: 065
  6. ADVAIR [Concomitant]
     Route: 065
  7. SINGULAR [Concomitant]
     Route: 048
  8. RABEPRAZOLE [Concomitant]
     Route: 048

REACTIONS (1)
  - Atrioventricular block [Unknown]
